FAERS Safety Report 5988342-X (Version None)
Quarter: 2008Q4

REPORT INFORMATION
  Report Type: 
  Country: None (occurrence: None)
  Receive Date: 20081204
  Receipt Date: 20081120
  Transmission Date: 20090506
  Serious: Yes (Hospitalization)
  Sender: FDA-Public Use
  Company Number: KV200800590

PATIENT
  Age: 59 Year
  Sex: Female

DRUGS (8)
  1. PROPAFENONE HCL [Suspect]
     Indication: SUPRAVENTRICULAR TACHYCARDIA
     Dosage: 225 MG, ONE TABLET TID, ORAL
     Route: 048
     Dates: start: 20000101
  2. DIGOXIN [Concomitant]
  3. ZOCOR [Concomitant]
  4. WARFARIN SODIUM [Concomitant]
  5. LEVOTHYROXINE SODIUM [Concomitant]
  6. ADVAIR DISKUS 100/50 [Concomitant]
  7. ALBUTEROL /00139501/ (SALBUTAMOL) [Concomitant]
  8. SPIRIVA [Concomitant]

REACTIONS (3)
  - ATRIAL FIBRILLATION [None]
  - ATRIAL FLUTTER [None]
  - PRODUCT QUALITY ISSUE [None]
